FAERS Safety Report 23080359 (Version 1)
Quarter: 2023Q4

REPORT INFORMATION
  Report Type: Spontaneous
  Country: CN (occurrence: CN)
  Receive Date: 20231018
  Receipt Date: 20231018
  Transmission Date: 20240109
  Serious: Yes (Hospitalization)
  Sender: FDA-Public Use
  Company Number: CN-ELI_LILLY_AND_COMPANY-CN202310006617

PATIENT
  Age: 74 Year
  Sex: Male
  Weight: 52 kg

DRUGS (2)
  1. HUMALOG [Suspect]
     Active Substance: INSULIN LISPRO
     Indication: Diabetes mellitus
     Dosage: 4 U, BID
     Route: 058
     Dates: start: 20230502, end: 20230916
  2. INSULIN ASPART\INSULIN DEGLUDEC [Suspect]
     Active Substance: INSULIN ASPART\INSULIN DEGLUDEC
     Indication: Diabetes mellitus
     Dosage: 10 U, DAILY
     Route: 058
     Dates: start: 20230502, end: 20230916

REACTIONS (3)
  - Hypoglycaemic coma [Recovering/Resolving]
  - Urinary incontinence [Recovering/Resolving]
  - Chest discomfort [Recovering/Resolving]

NARRATIVE: CASE EVENT DATE: 20230916
